FAERS Safety Report 6704870-3 (Version None)
Quarter: 2010Q2

REPORT INFORMATION
  Report Type: 
  Country: None (occurrence: None)
  Receive Date: 20100430
  Receipt Date: 20091221
  Transmission Date: 20101027
  Serious: No
  Sender: FDA-Public Use
  Company Number: US-ASTRAZENECA-2009SE30335

PATIENT
  Sex: Male

DRUGS (1)
  1. NEXIUM [Suspect]
     Route: 048

REACTIONS (4)
  - CHOKING [None]
  - DIARRHOEA [None]
  - DRUG DOSE OMISSION [None]
  - VOMITING [None]
